FAERS Safety Report 10066596 (Version 1)
Quarter: 2014Q2

REPORT INFORMATION
  Report Type: Spontaneous
  Country: IT (occurrence: IT)
  Receive Date: 20140408
  Receipt Date: 20140408
  Transmission Date: 20141212
  Serious: Yes (Other)
  Sender: FDA-Public Use
  Company Number: IT-WATSON-2013-25298

PATIENT
  Age: 37 Year
  Sex: Male

DRUGS (1)
  1. KETOPROFEN (UNKNOWN) [Suspect]
     Indication: INFLUENZA
     Route: 048
     Dates: start: 20130701, end: 20130701

REACTIONS (1)
  - Angioedema [Recovered/Resolved]
